FAERS Safety Report 9096401 (Version 1)
Quarter: 2013Q1

REPORT INFORMATION
  Report Type: Spontaneous
  Country: US (occurrence: None)
  Receive Date: 20130124
  Receipt Date: 20130124
  Transmission Date: 20140127
  Serious: Yes (Death)
  Sender: FDA-Public Use
  Company Number: 2013SP000331

PATIENT
  Age: 49 Year
  Sex: Female

DRUGS (3)
  1. DILTIAZEM HYDROCHLORIDE [Suspect]
  2. AMITRIPTYLINE [Suspect]
  3. CITALOPRAM [Suspect]

REACTIONS (2)
  - Toxicity to various agents [None]
  - Drug abuse [None]
